FAERS Safety Report 9356610 (Version 2)
Quarter: 2014Q3

REPORT INFORMATION
  Report Type: Spontaneous
  Country: US (occurrence: US)
  Receive Date: 20130619
  Receipt Date: 20140812
  Transmission Date: 20150326
  Serious: Yes (Life-Threatening, Hospitalization, Other)
  Sender: FDA-Public Use
  Company Number: US-009507513-1306USA008988

PATIENT
  Sex: Female

DRUGS (1)
  1. NUVARING [Suspect]
     Active Substance: ETHINYL ESTRADIOL\ETONOGESTREL
     Indication: CONTRACEPTION
     Dosage: UNK
     Route: 067
     Dates: start: 2009, end: 20100713

REACTIONS (10)
  - Post procedural constipation [Recovered/Resolved]
  - Intervertebral disc operation [Unknown]
  - Acute respiratory failure [Unknown]
  - Hepatic steatosis [Unknown]
  - Sinus operation [Unknown]
  - Abdominal pain [Recovered/Resolved]
  - Pulmonary embolism [Unknown]
  - Asthma [Unknown]
  - Tonsillectomy [Unknown]
  - Back pain [Unknown]

NARRATIVE: CASE EVENT DATE: 20110522
